FAERS Safety Report 20947233 (Version 1)
Quarter: 2022Q2

REPORT INFORMATION
  Report Type: Report from Study
  Country: US (occurrence: US)
  Receive Date: 20220610
  Receipt Date: 20220610
  Transmission Date: 20220721
  Serious: Yes (Other)
  Sender: FDA-Public Use
  Company Number: US-BRISTOL-MYERS SQUIBB COMPANY-2022-050655

PATIENT
  Age: 62 Year
  Sex: Male
  Weight: 82.100 kg

DRUGS (3)
  1. REVLIMID [Suspect]
     Active Substance: LENALIDOMIDE
     Indication: Plasma cell myeloma
     Route: 048
     Dates: start: 202007
  2. REVLIMID [Suspect]
     Active Substance: LENALIDOMIDE
     Indication: Arteriosclerosis
  3. REVLIMID [Suspect]
     Active Substance: LENALIDOMIDE
     Indication: Hyperlipidaemia

REACTIONS (3)
  - Cough [Unknown]
  - Choking [Unknown]
  - Intentional product use issue [Unknown]
